FAERS Safety Report 5425204-0 (Version None)
Quarter: 2007Q3

REPORT INFORMATION
  Report Type: 
  Country: None (occurrence: None)
  Receive Date: 20070824
  Receipt Date: 20070815
  Transmission Date: 20080115
  Serious: Yes (Death)
  Sender: FDA-Public Use
  Company Number: B0484339A

PATIENT
  Age: 48 Year
  Sex: Female

DRUGS (5)
  1. SOLPADEINE [Suspect]
     Indication: BACK PAIN
     Route: 048
  2. CODEINE SUL TAB [Suspect]
     Indication: BACK PAIN
     Route: 048
  3. PARACETAMOL [Suspect]
     Route: 065
  4. SEDATIVES [Suspect]
     Route: 065
  5. ALCOHOL [Suspect]
     Route: 048

REACTIONS (7)
  - ACCIDENTAL OVERDOSE [None]
  - DRUG DEPENDENCE [None]
  - DRUG INEFFECTIVE [None]
  - DRUG TOXICITY [None]
  - LOSS OF CONSCIOUSNESS [None]
  - PANCREATITIS [None]
  - RESPIRATORY FAILURE [None]
